FAERS Safety Report 5110877-2 (Version None)
Quarter: 2006Q3

REPORT INFORMATION
  Report Type: 
  Country: None (occurrence: None)
  Receive Date: 20060919
  Receipt Date: 20060829
  Transmission Date: 20061208
  Serious: Yes (Other)
  Sender: FDA-Public Use
  Company Number: 6025406

PATIENT
  Sex: Female

DRUGS (2)
  1. BISOPROLOL FUMARATE [Suspect]
     Indication: HYPERTENSION
     Dosage: 5 MG (5 MG, 1 IN 1 D) ORAL
     Route: 048
     Dates: start: 20060221, end: 20060710
  2. AMLODIPINE [Concomitant]

REACTIONS (2)
  - DEAFNESS TRANSITORY [None]
  - EAR DISCOMFORT [None]
